FAERS Safety Report 16237565 (Version 2)
Quarter: 2019Q2

REPORT INFORMATION
  Report Type: Spontaneous
  Country: US (occurrence: US)
  Receive Date: 20190425
  Receipt Date: 20190430
  Transmission Date: 20190711
  Serious: No
  Sender: FDA-Public Use
  Company Number: US-SUNOVION-2019SUN001662

PATIENT
  Age: 46 Year
  Sex: Female
  Weight: 148.3 kg

DRUGS (3)
  1. LATUDA [Suspect]
     Active Substance: LURASIDONE HYDROCHLORIDE
     Indication: WEIGHT DECREASED
  2. LATUDA [Suspect]
     Active Substance: LURASIDONE HYDROCHLORIDE
     Indication: BIPOLAR DISORDER
     Dosage: 60 MG,1 TAB  QD
     Route: 048
     Dates: start: 201812
  3. LATUDA [Suspect]
     Active Substance: LURASIDONE HYDROCHLORIDE
     Indication: DEPRESSION
     Dosage: 1/2 TAB
     Route: 048

REACTIONS (15)
  - Thirst [Not Recovered/Not Resolved]
  - Wrong technique in product usage process [Unknown]
  - Weight loss poor [Not Recovered/Not Resolved]
  - Weight increased [Not Recovered/Not Resolved]
  - Intrusive thoughts [Unknown]
  - Chondropathy [Unknown]
  - Hallucination, visual [Not Recovered/Not Resolved]
  - Off label use [Unknown]
  - Appetite disorder [Not Recovered/Not Resolved]
  - Blood cholesterol increased [Unknown]
  - Gait disturbance [Unknown]
  - Myalgia [Unknown]
  - Feeling hot [Not Recovered/Not Resolved]
  - Joint injury [Unknown]
  - Pain in extremity [Unknown]

NARRATIVE: CASE EVENT DATE: 201812
